FAERS Safety Report 5125104-X (Version None)
Quarter: 2006Q4

REPORT INFORMATION
  Report Type: 
  Country: None (occurrence: None)
  Receive Date: 20061010
  Receipt Date: 20061010
  Transmission Date: 20070319
  Serious: Yes (Other)
  Sender: FDA-Public Use
  Company Number: None

PATIENT
  Age: 62 Year
  Sex: Female
  Weight: 83.4619 kg

DRUGS (5)
  1. REMICADE [Suspect]
     Indication: RHEUMATOID ARTHRITIS
     Dosage: 400 MG Q8H IV
     Route: 042
     Dates: start: 20060720, end: 20060809
  2. CELEBREX [Concomitant]
  3. CITALOPRAM [Concomitant]
  4. TRIAMTERNE/HCTZ [Concomitant]
  5. CLIMARA [Concomitant]

REACTIONS (1)
  - BENIGN BREAST NEOPLASM [None]
